FAERS Safety Report 6388569-1 (Version None)
Quarter: 2009Q4

REPORT INFORMATION
  Report Type: 
  Country: None (occurrence: None)
  Receive Date: 20091005
  Receipt Date: 20090926
  Transmission Date: 20100525
  Serious: Yes (Other)
  Sender: FDA-Public Use
  Company Number: US-BAYER-200933872GPV

PATIENT
  Sex: Male

DRUGS (3)
  1. DACARBAZINE [Suspect]
     Indication: MALIGNANT MELANOMA
  2. VITAXIN [Suspect]
     Indication: MALIGNANT MELANOMA
  3. INTERFERON [Concomitant]
     Indication: ADJUVANT THERAPY
     Dosage: HIGH-DOSE

REACTIONS (5)
  - ACUTE MYELOID LEUKAEMIA [None]
  - ANAEMIA [None]
  - DYSPNOEA [None]
  - FATIGUE [None]
  - THROMBOCYTOPENIA [None]
